FAERS Safety Report 15889479 (Version 1)
Quarter: 2019Q1

REPORT INFORMATION
  Report Type: Spontaneous
  Country: US (occurrence: US)
  Receive Date: 20190130
  Receipt Date: 20190130
  Transmission Date: 20190417
  Serious: Yes (Hospitalization)
  Sender: FDA-Public Use
  Company Number: None

PATIENT
  Age: 52 Year
  Sex: Female
  Weight: 78.75 kg

DRUGS (1)
  1. QUETIAPINE FUMARATE 100MG TAB ACCO NDC 16729-0147-01 FOR SEREQUEL 100 [Suspect]
     Active Substance: QUETIAPINE FUMARATE
     Indication: BIPOLAR DISORDER
     Dosage: ?          QUANTITY:1 TABLET(S);?
     Route: 048

REACTIONS (5)
  - Pruritus [None]
  - Syncope [None]
  - Fall [None]
  - Aggression [None]
  - Traumatic tooth displacement [None]

NARRATIVE: CASE EVENT DATE: 20190113
